FAERS Safety Report 17844791 (Version 1)
Quarter: 2020Q2

REPORT INFORMATION
  Report Type: Report from Study
  Country: BR (occurrence: BR)
  Receive Date: 20200601
  Receipt Date: 20200601
  Transmission Date: 20200714
  Serious: Yes (Other)
  Sender: FDA-Public Use
  Company Number: BR-BRISTOL-MYERS SQUIBB COMPANY-BMS-2020-042003

PATIENT
  Age: 81 Year
  Sex: Female

DRUGS (1)
  1. APIXABAN [Suspect]
     Active Substance: APIXABAN
     Indication: PRODUCT USED FOR UNKNOWN INDICATION
     Dosage: UNK UNK, QOD
     Route: 065

REACTIONS (4)
  - Feeling abnormal [Unknown]
  - Angina pectoris [Unknown]
  - Intentional product misuse [Unknown]
  - Dizziness [Unknown]

NARRATIVE: CASE EVENT DATE: 20200526
